FAERS Safety Report 5908693-4 (Version None)
Quarter: 2008Q4

REPORT INFORMATION
  Report Type: 
  Country: None (occurrence: None)
  Receive Date: 20081006
  Receipt Date: 20080930
  Transmission Date: 20090506
  Serious: Yes (Hospitalization)
  Sender: FDA-Public Use
  Company Number: A0747081A

PATIENT
  Age: 17 Year
  Sex: Male
  Weight: 72.6 kg

DRUGS (2)
  1. ARRANON [Suspect]
     Indication: T-CELL TYPE ACUTE LEUKAEMIA
     Dosage: 1160MG UNKNOWN
     Route: 042
     Dates: start: 20080605, end: 20080610
  2. NO CONCURRENT MEDICATION [Concomitant]

REACTIONS (9)
  - ADVERSE EVENT [None]
  - BLINDNESS [None]
  - EYE DISORDER [None]
  - EYE HAEMORRHAGE [None]
  - NEUTROPENIA [None]
  - OCULAR CANCER METASTATIC [None]
  - OPTIC ISCHAEMIC NEUROPATHY [None]
  - PYREXIA [None]
  - VISION BLURRED [None]
